FAERS Safety Report 5345400-0 (Version None)
Quarter: 2007Q2

REPORT INFORMATION
  Report Type: 
  Country: None (occurrence: None)
  Receive Date: 20070430
  Receipt Date: 20060501
  Transmission Date: 20071010
  Serious: Yes (Other)
  Sender: FDA-Public Use
  Company Number: HQWYE533527JAN06

PATIENT
  Age: 46 Year
  Sex: Female
  Weight: 59.02 kg

DRUGS (1)
  1. ADVIL MULTI-SYMPTOM COLD (IBUPROFEN/CHLORPHENIRAMINE/PSEUDOEPHEDRINE, [Suspect]
     Indication: SINUS HEADACHE
     Dosage: 2 TABLET 1X PER 1 DAY, ORAL
     Route: 048
     Dates: start: 20060121, end: 20060121

REACTIONS (2)
  - HYPERSENSITIVITY [None]
  - URTICARIA GENERALISED [None]
